FAERS Safety Report 11694189 (Version 3)
Quarter: 2016Q1

REPORT INFORMATION
  Report Type: Spontaneous
  Country: AU (occurrence: AU)
  Receive Date: 20151103
  Receipt Date: 20160301
  Transmission Date: 20160525
  Serious: Yes (Hospitalization, Other)
  Sender: FDA-Public Use
  Company Number: AU-AMGEN-AUSSP2015115300

PATIENT
  Age: 24 Year
  Sex: Female

DRUGS (4)
  1. NEULASTA [Suspect]
     Active Substance: PEGFILGRASTIM
     Indication: INFANTILE GENETIC AGRANULOCYTOSIS
     Dosage: UNK
     Route: 065
     Dates: start: 2006
  2. PREDNISOLONE. [Concomitant]
     Active Substance: PREDNISOLONE
     Dosage: UNK
  3. LENOGRASTIM [Concomitant]
     Active Substance: LENOGRASTIM
     Indication: INFANTILE GENETIC AGRANULOCYTOSIS
     Dosage: UNK
  4. NEUPOGEN [Suspect]
     Active Substance: FILGRASTIM
     Indication: INFANTILE GENETIC AGRANULOCYTOSIS
     Dosage: UNK
     Route: 065
     Dates: start: 1991

REACTIONS (15)
  - Acute myeloid leukaemia [Unknown]
  - Gingival ulceration [Unknown]
  - Oral candidiasis [Unknown]
  - Herpes simplex [Unknown]
  - Pregnancy [Recovered/Resolved]
  - Gingival hypertrophy [Unknown]
  - Neutropenia [Unknown]
  - Gene mutation [Unknown]
  - Platelet count abnormal [Unknown]
  - Bone marrow transplant [Unknown]
  - Reticulin increased [Unknown]
  - Therapeutic response decreased [Unknown]
  - No therapeutic response [Unknown]
  - Antibody test abnormal [Unknown]
  - Haemoglobin abnormal [Unknown]

NARRATIVE: CASE EVENT DATE: 2015
